FAERS Safety Report 8795941 (Version 1)
Quarter: 2012Q4

REPORT INFORMATION
  Report Type: 
  Country: DE (occurrence: PL)
  Receive Date: 20120919
  Receipt Date: 20120919
  Transmission Date: 20130627
  Serious: Yes (Other)
  Sender: FDA-Public Use
  Company Number: PL-BRISTOL-MYERS SQUIBB COMPANY-16955205

PATIENT
  Age: 59 Year
  Sex: Female

DRUGS (6)
  1. GLUCOPHAGE [Suspect]
     Indication: TYPE 2 DIABETES MELLITUS
     Route: 048
     Dates: start: 20120616, end: 20120707
  2. AMARYL [Suspect]
     Dates: start: 20120710
  3. VENORUTON [Concomitant]
     Dates: end: 2012
  4. ATENOLOL [Concomitant]
  5. DIURESIN [Concomitant]
  6. HEPARIN [Concomitant]

REACTIONS (2)
  - Stevens-Johnson syndrome [Unknown]
  - Weight decreased [Unknown]
